FAERS Safety Report 7230988-5 (Version None)
Quarter: 2011Q1

REPORT INFORMATION
  Report Type: 
  Country: None (occurrence: None)
  Receive Date: 20110118
  Receipt Date: 20110112
  Transmission Date: 20110831
  Serious: No
  Sender: FDA-Public Use
  Company Number: US-ROCHE-751023

PATIENT
  Sex: Female

DRUGS (3)
  1. TOCILIZUMAB [Suspect]
     Indication: RHEUMATOID ARTHRITIS
     Dosage: FORM: INFUSION, ROUTE, FORM, DOSE AND FREQUENCY: AS PER PROTOCOL
     Route: 042
     Dates: start: 20060822
  2. METHOTREXATE [Concomitant]
     Indication: RHEUMATOID ARTHRITIS
     Dosage: PATIENT COMPLETED A DOUBLE BLINDED MRA CORE STUDY WA18062, CENTRE NO: 59384, RANDOMISATION : 200495
     Route: 065
  3. TOCILIZUMAB [Suspect]
     Dosage: PATIENT COMPLETED A DOUBLE BLINDED MRA CORE STUDY WA18062, CENTRE NO: 59384, RANDOMISATION : 200495
     Route: 042

REACTIONS (1)
  - TENDON RUPTURE [None]
